FAERS Safety Report 6846220-8 (Version None)
Quarter: 2010Q3

REPORT INFORMATION
  Report Type: 
  Country: None (occurrence: None)
  Receive Date: 20100715
  Receipt Date: 20070910
  Transmission Date: 20110219
  Serious: No
  Sender: FDA-Public Use
  Company Number: US-PFIZER INC-2007077949

PATIENT
  Sex: Female
  Weight: 90.909 kg

DRUGS (14)
  1. CHANTIX [Suspect]
     Indication: SMOKING CESSATION THERAPY
     Dates: start: 20070905
  2. NIFEDIPINE [Concomitant]
     Indication: HYPERTENSION
  3. NABUMETONE [Concomitant]
     Indication: ARTHRITIS
  4. RANITIDINE [Concomitant]
  5. LISINOPRIL [Concomitant]
  6. LOVASTATIN [Concomitant]
     Indication: BLOOD CHOLESTEROL INCREASED
  7. OXYBUTYNIN CHLORIDE [Concomitant]
     Indication: HYPERTONIC BLADDER
  8. ZOLPIDEM [Concomitant]
     Indication: INSOMNIA
  9. OXYCODONE HCL [Concomitant]
     Indication: ARTHROPATHY
  10. ZYRTEC [Concomitant]
     Indication: HYPERSENSITIVITY
  11. PROAIR HFA [Concomitant]
     Indication: CHRONIC OBSTRUCTIVE PULMONARY DISEASE
  12. LIDODERM [Concomitant]
     Indication: ARTHROPATHY
  13. RHINOCORT [Concomitant]
     Indication: SINUSITIS
  14. MECLIZINE [Concomitant]

REACTIONS (4)
  - ASTHENIA [None]
  - DIZZINESS [None]
  - FEELING ABNORMAL [None]
  - NAUSEA [None]
